FAERS Safety Report 8821593 (Version 2)
Quarter: 2013Q1

REPORT INFORMATION
  Report Type: Report from Study
  Country: US (occurrence: US)
  Receive Date: 20121002
  Receipt Date: 20130128
  Transmission Date: 20140127
  Serious: Yes (Hospitalization)
  Sender: FDA-Public Use
  Company Number: US-ROCHE-1139630

PATIENT
  Age: 58 Year
  Sex: Male
  Weight: 69 kg

DRUGS (13)
  1. RIBAVIRIN [Suspect]
     Indication: HEPATITIS C
     Route: 048
     Dates: start: 20120501, end: 20120531
  2. PEG-INTERFERON ALFA 2A [Suspect]
     Indication: HEPATITIS C
     Route: 030
     Dates: start: 20120501, end: 20120529
  3. UNSPECIFIED INGREDIENT [Suspect]
     Indication: HEPATITIS C
     Route: 048
     Dates: start: 20120501, end: 20120531
  4. GS 9451 (NS3 PROTEASE INHIBITOR) [Suspect]
     Indication: HEPATITIS C
     Route: 048
     Dates: start: 20120501, end: 20120531
  5. LEVOTHYROXINE [Concomitant]
     Indication: THYROID DISORDER
     Route: 065
     Dates: start: 2010
  6. TYLENOL [Concomitant]
     Indication: HEADACHE
     Route: 065
     Dates: start: 20120503
  7. ISONIAZID [Concomitant]
  8. RIFAMPIN [Concomitant]
  9. PYRAZINAMIDE [Concomitant]
  10. ETHAMBUTOL [Concomitant]
  11. IBUPROFEN [Concomitant]
  12. METAMUCIL [Concomitant]
  13. PYRIDOXINE [Concomitant]

REACTIONS (1)
  - Tuberculosis [Recovered/Resolved]
